FAERS Safety Report 4899199-2 (Version None)
Quarter: 2006Q1

REPORT INFORMATION
  Report Type: 
  Country: None (occurrence: None)
  Receive Date: 20060131
  Receipt Date: 20060124
  Transmission Date: 20060701
  Serious: Yes (Hospitalization)
  Sender: FDA-Public Use
  Company Number: 200610014BFR

PATIENT
  Age: 10 Year
  Sex: Female

DRUGS (13)
  1. CIPROFLOXACIN [Suspect]
     Indication: LUNG INFECTION PSEUDOMONAL
     Dosage: ORAL, ORAL, 500 MG, BID; ORAL
     Route: 048
     Dates: start: 20011231, end: 20020101
  2. CIPROFLOXACIN [Suspect]
     Indication: LUNG INFECTION PSEUDOMONAL
     Dosage: ORAL, ORAL, 500 MG, BID; ORAL
     Route: 048
     Dates: start: 20020912, end: 20021201
  3. CIPROFLOXACIN [Suspect]
     Indication: LUNG INFECTION PSEUDOMONAL
     Dosage: ORAL, ORAL, 500 MG, BID; ORAL
     Route: 048
     Dates: start: 20050701, end: 20050701
  4. ZITHROMAX [Concomitant]
  5. TOBI [Concomitant]
  6. CREON [Concomitant]
  7. UVESTEROL [Concomitant]
  8. EPHYNAL [Concomitant]
  9. NUREFLEX [Concomitant]
  10. VITAMINE KI DELAGRANGE [Concomitant]
  11. MAGNE-B6 [Concomitant]
  12. AVIBON [Concomitant]
  13. PULMOZYME [Concomitant]

REACTIONS (4)
  - ARTHRALGIA [None]
  - ARTHROPATHY [None]
  - INTERMITTENT CLAUDICATION [None]
  - OSTEOCHONDROSIS [None]
